FAERS Safety Report 24878554 (Version 1)
Quarter: 2025Q1

REPORT INFORMATION
  Report Type: Spontaneous
  Country: JM (occurrence: JM)
  Receive Date: 20250123
  Receipt Date: 20250123
  Transmission Date: 20250409
  Serious: Yes (Death)
  Sender: PFIZER
  Company Number: JM-PFIZER INC-PV202500008290

PATIENT
  Age: 76 Year
  Sex: Male

DRUGS (1)
  1. VYNDAMAX [Suspect]
     Active Substance: TAFAMIDIS
     Indication: Cardiac amyloidosis

REACTIONS (2)
  - Cardiac failure [Fatal]
  - Renal failure [Fatal]
